FAERS Safety Report 19855625 (Version 1)
Quarter: 2021Q3

REPORT INFORMATION
  Report Type: Spontaneous
  Country: CA (occurrence: CA)
  Receive Date: 20210920
  Receipt Date: 20210920
  Transmission Date: 20211014
  Serious: Yes (Disabling)
  Sender: FDA-Public Use
  Company Number: None

PATIENT
  Age: 25 Year
  Sex: Female
  Weight: 67.5 kg

DRUGS (9)
  1. D [Concomitant]
  2. DUPIXENT [Concomitant]
     Active Substance: DUPILUMAB
  3. IRON PILLS [Concomitant]
     Active Substance: IRON
  4. VITAMIN C [Concomitant]
     Active Substance: ASCORBIC ACID
  5. PREDNISONE. [Suspect]
     Active Substance: PREDNISONE
     Indication: STEROID THERAPY
     Dosage: ?          QUANTITY:140 TABLET(S);?
     Route: 048
     Dates: start: 20090221, end: 20190105
  6. VITAMIN B12 [Concomitant]
     Active Substance: CYANOCOBALAMIN
  7. BLUE INHALER FOR ASTHMA [Concomitant]
  8. BETADERM [Suspect]
     Active Substance: BETAMETHASONE VALERATE
     Indication: ECZEMA
     Route: 061
     Dates: start: 20100917, end: 20190605
  9. GARLIC PILLS [Concomitant]

REACTIONS (15)
  - Skin exfoliation [None]
  - Nipple disorder [None]
  - Steroid withdrawal syndrome [None]
  - Nerve injury [None]
  - Skin atrophy [None]
  - Bedridden [None]
  - Temperature regulation disorder [None]
  - Erythema [None]
  - Neuralgia [None]
  - Insomnia [None]
  - Dysstasia [None]
  - Skin odour abnormal [None]
  - Skin warm [None]
  - Pruritus [None]
  - Pain in extremity [None]

NARRATIVE: CASE EVENT DATE: 20190105
